FAERS Safety Report 11253285 (Version 1)
Quarter: 2015Q3

REPORT INFORMATION
  Report Type: Spontaneous
  Country: FR (occurrence: FR)
  Receive Date: 20150709
  Receipt Date: 20150709
  Transmission Date: 20151125
  Serious: Yes (Hospitalization)
  Sender: FDA-Public Use
  Company Number: FR-AMGEN-FRASP2015066564

PATIENT
  Age: 78 Year
  Sex: Female
  Weight: 60 kg

DRUGS (6)
  1. BIPROFENID [Concomitant]
     Active Substance: KETOPROFEN
     Indication: PAIN
     Dosage: 100 MG, UNK
     Route: 048
     Dates: start: 20150521, end: 20150522
  2. DOLIPRANE [Concomitant]
     Active Substance: ACETAMINOPHEN
     Indication: PAIN
     Dosage: 1 G, UNK
     Route: 048
     Dates: start: 20150521, end: 20150522
  3. OROCAL                             /00944201/ [Concomitant]
     Active Substance: CALCIUM CARBONATE
     Dosage: VITAMIN D3 500 MG/400 IU
     Route: 048
     Dates: start: 201404, end: 20150420
  4. OMEPRAZOLE                         /00661202/ [Concomitant]
     Dosage: UNK
     Route: 048
     Dates: start: 20150521, end: 20150522
  5. ACTISKENAN [Concomitant]
     Active Substance: MORPHINE SULFATE
     Indication: PAIN
     Dosage: 10 MG, UNK
     Route: 048
     Dates: start: 20150520, end: 20150521
  6. PROLIA [Suspect]
     Active Substance: DENOSUMAB
     Indication: OSTEOPOROSIS POSTMENOPAUSAL
     Dosage: 60 MG, UNK
     Route: 058
     Dates: start: 201404, end: 20150420

REACTIONS (1)
  - Sternal fracture [Recovered/Resolved]

NARRATIVE: CASE EVENT DATE: 20150521
